FAERS Safety Report 9115575 (Version 3)
Quarter: 2013Q1

REPORT INFORMATION
  Report Type: Spontaneous
  Country: US (occurrence: US)
  Receive Date: 20130225
  Receipt Date: 20130314
  Transmission Date: 20140127
  Serious: No
  Sender: FDA-Public Use
  Company Number: US-PFIZER INC-2013067318

PATIENT
  Age: 54 Year
  Sex: Female
  Weight: 88 kg

DRUGS (4)
  1. NEURONTIN [Suspect]
     Indication: DIABETIC NEUROPATHY
     Dosage: 300 MG, 3X/DAY
     Dates: start: 2012, end: 201302
  2. LANTUS [Suspect]
     Indication: DIABETES MELLITUS
     Dosage: 70 UNITS, DAILY AT NIGHT
     Dates: start: 2013
  3. HUMALOG [Suspect]
     Indication: DIABETES MELLITUS
     Dosage: 20 UNITS THREE TIMES A DAY
     Dates: start: 2013
  4. LISINOPRIL W/HYDROCHLOROTHIAZIDE [Concomitant]
     Dosage: 20 MG LISINOPRIL /25 MG HYDROCHLOROTHIAZIDE, DAILY

REACTIONS (1)
  - Blood glucose increased [Recovering/Resolving]
